FAERS Safety Report 4594168-4 (Version None)
Quarter: 2005Q1

REPORT INFORMATION
  Report Type: 
  Country: None (occurrence: None)
  Receive Date: 20050301
  Receipt Date: 20041115
  Transmission Date: 20050727
  Serious: Yes (Other)
  Sender: FDA-Public Use
  Company Number: BE-GLAXOSMITHKLINE-B0357968A

PATIENT
  Age: 35 Year
  Sex: Female
  Weight: 53 kg

DRUGS (3)
  1. ZYBAN [Suspect]
     Indication: SMOKING CESSATION THERAPY
     Dosage: 150MG SEE DOSAGE TEXT
     Route: 048
     Dates: start: 20041025, end: 20041211
  2. ALCOHOL [Suspect]
  3. NO CONCURRENT MEDICATION [Concomitant]

REACTIONS (4)
  - DRUG INTERACTION [None]
  - EMOTIONAL DISORDER [None]
  - HAEMATOMA [None]
  - RETROGRADE AMNESIA [None]
